FAERS Safety Report 4814789-0 (Version None)
Quarter: 2005Q4

REPORT INFORMATION
  Report Type: 
  Country: None (occurrence: None)
  Receive Date: 20051028
  Receipt Date: 20051017
  Transmission Date: 20060501
  Serious: Yes (Hospitalization)
  Sender: FDA-Public Use
  Company Number: PHNU2005PL03495

PATIENT
  Age: 47 Year
  Sex: Male
  Weight: 72 kg

DRUGS (6)
  1. DIOVAN HCT [Suspect]
     Indication: HYPERTENSION
     Dosage: 80 MG/D
     Route: 048
     Dates: start: 20050909, end: 20050912
  2. GLICLAZIDE [Concomitant]
  3. METFORMAX [Concomitant]
  4. METOPROLOL [Concomitant]
  5. ZOCOR [Concomitant]
  6. PERLINGANIT [Concomitant]

REACTIONS (1)
  - ERYTHEMA [None]
